FAERS Safety Report 5357223-7 (Version None)
Quarter: 2007Q2

REPORT INFORMATION
  Report Type: 
  Country: None (occurrence: None)
  Receive Date: 20070614
  Receipt Date: 20070605
  Transmission Date: 20071010
  Serious: Yes (Other)
  Sender: FDA-Public Use
  Company Number: JP-JNJFOC-20070600657

PATIENT
  Sex: Female

DRUGS (13)
  1. ITRIZOLE [Suspect]
     Indication: ORAL CANDIDIASIS
     Route: 048
     Dates: start: 20070419, end: 20070428
  2. HALCION [Interacting]
     Indication: INSOMNIA
     Route: 048
  3. ASPIRIN [Concomitant]
     Indication: CARDIAC DISORDER
     Route: 048
  4. NU-LOTAN [Concomitant]
     Indication: HYPERTENSION
     Route: 048
  5. FLUITRAN [Concomitant]
     Indication: HYPERTENSION
     Route: 048
  6. ITOROL [Concomitant]
     Indication: CARDIAC DISORDER
     Route: 048
  7. SIGMART [Concomitant]
     Indication: CARDIAC DISORDER
     Route: 048
  8. ADALAT [Concomitant]
     Indication: HYPERTENSION
     Route: 048
  9. PURSENNID [Concomitant]
     Indication: CONSTIPATION
     Route: 048
  10. ALESION [Concomitant]
     Indication: RHINITIS ALLERGIC
     Route: 048
  11. HERBAL MEDICINE [Concomitant]
     Indication: GASTRITIS
     Route: 048
  12. FRANDOL S [Concomitant]
     Indication: CARDIAC DISORDER
     Route: 065
  13. MAGLAX [Concomitant]
     Indication: GASTRITIS
     Route: 048

REACTIONS (2)
  - DRUG INTERACTION [None]
  - DYSSTASIA [None]
